FAERS Safety Report 8090800 (Version 2)
Quarter: 2013Q4

REPORT INFORMATION
  Report Type: Spontaneous
  Country: US (occurrence: US)
  Receive Date: 20110815
  Receipt Date: 20131203
  Transmission Date: 20140711
  Serious: Yes (Other)
  Sender: FDA-Public Use
  Company Number: US-BAYER-2011-072062

PATIENT
  Age: 16 Year
  Sex: Female

DRUGS (3)
  1. YAZ [Suspect]
     Dosage: UNK
     Dates: start: 200909
  2. CONCERTA [Concomitant]
     Dosage: 18 MG, UNK
     Route: 048
     Dates: start: 20090709
  3. CONCERTA [Concomitant]
     Dosage: 36 MG, UNK
     Route: 048
     Dates: start: 20090831

REACTIONS (7)
  - Gallbladder injury [None]
  - Cholecystitis chronic [None]
  - Pain [Unknown]
  - General physical health deterioration [Unknown]
  - Anxiety [Unknown]
  - Emotional distress [Unknown]
  - General physical health deterioration [Unknown]
